FAERS Safety Report 7007671-4 (Version None)
Quarter: 2010Q3

REPORT INFORMATION
  Report Type: 
  Country: None (occurrence: None)
  Receive Date: 20100920
  Receipt Date: 20100908
  Transmission Date: 20110219
  Serious: Yes (Other)
  Sender: FDA-Public Use
  Company Number: 1000016214

PATIENT
  Age: 71 Year
  Sex: Female

DRUGS (2)
  1. CITALOPRAM HYDROBROMIDE [Suspect]
     Dosage: 10 MG (10 MG, 1 IN 1 D), ORAL
     Route: 048
  2. AMISULPRIDE (AMISULPRIDE) (AMISULPRIDE) [Concomitant]

REACTIONS (3)
  - BLOOD PROLACTIN INCREASED [None]
  - VISION BLURRED [None]
  - VISUAL IMPAIRMENT [None]
